FAERS Safety Report 18918337 (Version 1)
Quarter: 2021Q1

REPORT INFORMATION
  Report Type: Spontaneous
  Country: US (occurrence: US)
  Receive Date: 20210219
  Receipt Date: 20210219
  Transmission Date: 20210420
  Serious: No
  Sender: FDA-Public Use
  Company Number: US-LUNDBECK-DKLU3027422

PATIENT
  Age: 52 Year
  Sex: Male

DRUGS (1)
  1. NORTHERA [Suspect]
     Active Substance: DROXIDOPA
     Indication: SALIVARY HYPERSECRETION
     Route: 048
     Dates: start: 20201230, end: 20210118

REACTIONS (2)
  - Product use in unapproved indication [Unknown]
  - Headache [Unknown]
